FAERS Safety Report 8489063-4 (Version None)
Quarter: 2012Q3

REPORT INFORMATION
  Report Type: 
  Country: None (occurrence: None)
  Receive Date: 20120705
  Receipt Date: 20120627
  Transmission Date: 20120928
  Serious: Yes (Other)
  Sender: FDA-Public Use
  Company Number: US-BAYER-2012-064145

PATIENT
  Age: 48 Year
  Sex: Male

DRUGS (4)
  1. VINBLASTINE SULFATE [Suspect]
     Indication: HODGKIN'S DISEASE
  2. DACARBAZINE [Suspect]
     Indication: HODGKIN'S DISEASE
  3. ADRIAMYCIN PFS [Suspect]
     Indication: HODGKIN'S DISEASE
  4. BLEOMYCIN SULFATE [Suspect]
     Indication: HODGKIN'S DISEASE

REACTIONS (6)
  - JOINT SWELLING [None]
  - SEROSITIS [None]
  - PERICARDIAL EFFUSION [None]
  - NEUTROPENIA [None]
  - APHTHOUS STOMATITIS [None]
  - ONYCHOMYCOSIS [None]
